FAERS Safety Report 4267258-3 (Version None)
Quarter: 2004Q1

REPORT INFORMATION
  Report Type: 
  Country: None (occurrence: None)
  Receive Date: 20040107
  Receipt Date: 20031229
  Transmission Date: 20041129
  Serious: Yes (Other)
  Sender: FDA-Public Use
  Company Number: HQWYE915429DEC03

PATIENT
  Age: 40 Year
  Sex: Female

DRUGS (5)
  1. LOGYNON (LEVONORGESTREL/ETHINYL ESTRADIOL, TABLET) [Suspect]
     Indication: ORAL CONTRACEPTION
     Dosage: 1 TABLET DAILY ORAL
     Route: 048
  2. COLOFAC (MEBEVERINE HYDROCHLORIDE) [Concomitant]
  3. THYROXINE SODIUM (LEVOTHYROXINE SODIUM) [Concomitant]
  4. MOTILIUM [Concomitant]
  5. CREON [Concomitant]

REACTIONS (2)
  - DRUG INTERACTION [None]
  - METRORRHAGIA [None]
